FAERS Safety Report 25285414 (Version 1)
Quarter: 2025Q2

REPORT INFORMATION
  Report Type: Spontaneous
  Country: US (occurrence: US)
  Receive Date: 20250509
  Receipt Date: 20250509
  Transmission Date: 20250717
  Serious: No
  Sender: MERCK SHARP & DOHME LLC
  Company Number: US-009507513-2277090

PATIENT
  Sex: Female
  Weight: 63.5 kg

DRUGS (9)
  1. WINREVAIR [Suspect]
     Active Substance: SOTATERCEPT-CSRK
  2. WINREVAIR [Suspect]
     Active Substance: SOTATERCEPT-CSRK
  3. WINREVAIR [Suspect]
     Active Substance: SOTATERCEPT-CSRK
  4. WINREVAIR [Suspect]
     Active Substance: SOTATERCEPT-CSRK
  5. TREPROSTINIL SODIUM [Concomitant]
     Active Substance: TREPROSTINIL SODIUM
     Indication: Pulmonary arterial hypertension
     Route: 058
     Dates: start: 20230428
  6. SYNTHROID [Concomitant]
     Active Substance: LEVOTHYROXINE SODIUM
  7. SILDENAFIL [Concomitant]
     Active Substance: SILDENAFIL
  8. FUROSEMIDE [Concomitant]
     Active Substance: FUROSEMIDE
  9. OPSUMIT [Concomitant]
     Active Substance: MACITENTAN

REACTIONS (1)
  - Dyspnoea [Unknown]
